FAERS Safety Report 11603821 (Version 1)
Quarter: 2015Q4

REPORT INFORMATION
  Report Type: Report from Study
  Country: US (occurrence: US)
  Receive Date: 20151007
  Receipt Date: 20151007
  Transmission Date: 20160304
  Serious: Yes (Other)
  Sender: FDA-Public Use
  Company Number: US-AMGEN-USASP2015103391

PATIENT
  Sex: Female

DRUGS (1)
  1. ENBREL [Suspect]
     Active Substance: ETANERCEPT
     Indication: PSORIATIC ARTHROPATHY
     Dosage: 50 MG, QWK
     Route: 065

REACTIONS (7)
  - Pneumothorax [Unknown]
  - Head injury [Unknown]
  - Weight increased [Unknown]
  - Cough [Not Recovered/Not Resolved]
  - Hand deformity [Unknown]
  - Road traffic accident [Unknown]
  - Bedridden [Unknown]

NARRATIVE: CASE EVENT DATE: 2011
